FAERS Safety Report 4960093-X (Version None)
Quarter: 2006Q1

REPORT INFORMATION
  Report Type: 
  Country: None (occurrence: None)
  Receive Date: 20060331
  Receipt Date: 20051007
  Transmission Date: 20060701
  Serious: Yes (Hospitalization)
  Sender: FDA-Public Use
  Company Number: US-MERCK-0510USA05655

PATIENT
  Age: 64 Year
  Sex: Male
  Weight: 133 kg

DRUGS (1)
  1. VIOXX [Suspect]
     Indication: FLUID RETENTION
     Route: 048
     Dates: start: 20010101, end: 20030101

REACTIONS (6)
  - CAROTID ARTERY OCCLUSION [None]
  - CEREBROVASCULAR ACCIDENT [None]
  - COORDINATION ABNORMAL [None]
  - DEPRESSION [None]
  - HEMIPARESIS [None]
  - MOOD SWINGS [None]
